FAERS Safety Report 17021180 (Version 2)
Quarter: 2019Q4

REPORT INFORMATION
  Report Type: Spontaneous
  Country: US (occurrence: US)
  Receive Date: 20191112
  Receipt Date: 20191202
  Transmission Date: 20200122
  Serious: No
  Sender: FDA-Public Use
  Company Number: US-009507513-1910USA015116

PATIENT
  Age: 30 Year
  Sex: Female
  Weight: 55.33 kg

DRUGS (1)
  1. NEXPLANON [Suspect]
     Active Substance: ETONOGESTREL
     Dosage: 1 ROD EVERY 3 YEARS
     Dates: start: 20190923

REACTIONS (3)
  - Complication associated with device [Unknown]
  - Device deployment issue [Unknown]
  - No adverse event [Unknown]

NARRATIVE: CASE EVENT DATE: 20190923
